FAERS Safety Report 6645591-5 (Version None)
Quarter: 2010Q1

REPORT INFORMATION
  Report Type: 
  Country: None (occurrence: None)
  Receive Date: 20100319
  Receipt Date: 20100319
  Transmission Date: 20100710
  Serious: Yes (Disabling)
  Sender: FDA-Public Use
  Company Number: None

PATIENT
  Age: 32 Year
  Sex: Male

DRUGS (1)
  1. DDAVP 20 MCG, 5 ML [Suspect]
     Indication: NEOPLASM MALIGNANT
     Dosage: 20 MCG OVER 30 MINUTES IV
     Route: 042
     Dates: start: 20100312, end: 20100312

REACTIONS (7)
  - CHEST DISCOMFORT [None]
  - ERYTHEMA [None]
  - FEELING HOT [None]
  - HEADACHE [None]
  - INFUSION RELATED REACTION [None]
  - PERIORBITAL OEDEMA [None]
  - THROAT IRRITATION [None]
